FAERS Safety Report 23454457 (Version 1)
Quarter: 2024Q1

REPORT INFORMATION
  Report Type: Report from Study
  Country: US (occurrence: US)
  Receive Date: 20240130
  Receipt Date: 20240130
  Transmission Date: 20240410
  Serious: Yes (Hospitalization, Other)
  Sender: FDA-Public Use
  Company Number: US-JAZZ PHARMACEUTICALS-2024-US-001458

PATIENT
  Age: 26 Year
  Sex: Male
  Weight: 81.6 kg

DRUGS (1)
  1. EPIDIOLEX [Suspect]
     Active Substance: CANNABIDIOL
     Indication: Lennox-Gastaut syndrome
     Dosage: 3.4 MILLILITER, BID
     Route: 048

REACTIONS (3)
  - Seizure [Unknown]
  - Head injury [Unknown]
  - Tongue biting [Unknown]

NARRATIVE: CASE EVENT DATE: 20240122
